FAERS Safety Report 6919056-7 (Version None)
Quarter: 2010Q3

REPORT INFORMATION
  Report Type: 
  Country: None (occurrence: None)
  Receive Date: 20100811
  Receipt Date: 20100728
  Transmission Date: 20110219
  Serious: Yes (Death, Hospitalization, Other)
  Sender: FDA-Public Use
  Company Number: PHHY2010BR52031

PATIENT
  Age: 18 Year
  Sex: Female

DRUGS (3)
  1. CYCLOSPORINE [Suspect]
     Indication: PUSTULAR PSORIASIS
  2. METHOTREXATE [Suspect]
     Indication: PUSTULAR PSORIASIS
  3. INFLIXIMAB [Suspect]
     Indication: PUSTULAR PSORIASIS
     Dosage: 5 MG/KG

REACTIONS (13)
  - ACINETOBACTER INFECTION [None]
  - BACTERIAL TOXAEMIA [None]
  - CONDITION AGGRAVATED [None]
  - DRUG INEFFECTIVE [None]
  - KELOID SCAR [None]
  - PUSTULAR PSORIASIS [None]
  - PYREXIA [None]
  - RASH PUSTULAR [None]
  - SCAR [None]
  - SEPSIS [None]
  - SEPTIC SHOCK [None]
  - STAPHYLOCOCCAL INFECTION [None]
  - UPPER RESPIRATORY TRACT INFECTION [None]
